FAERS Safety Report 11656425 (Version 1)
Quarter: 2015Q4

REPORT INFORMATION
  Report Type: Report from Study
  Country: DE (occurrence: DE)
  Receive Date: 20151023
  Receipt Date: 20151023
  Transmission Date: 20160304
  Serious: Yes (Other)
  Sender: FDA-Public Use
  Company Number: DE-BAYER-2015-446994

PATIENT
  Sex: Female

DRUGS (1)
  1. ASA [Suspect]
     Active Substance: ASPIRIN

REACTIONS (1)
  - Anaphylactic reaction [None]
